APPROVED DRUG PRODUCT: GEMCITABINE HYDROCHLORIDE
Active Ingredient: GEMCITABINE HYDROCHLORIDE
Strength: EQ 1GM BASE/VIAL
Dosage Form/Route: INJECTABLE;INJECTION
Application: A200145 | Product #002
Applicant: PHARMOBEDIENT CONSULTING LLC
Approved: Jul 25, 2011 | RLD: No | RS: No | Type: DISCN